FAERS Safety Report 4967148-4 (Version None)
Quarter: 2006Q2

REPORT INFORMATION
  Report Type: 
  Country: None (occurrence: None)
  Receive Date: 20060403
  Receipt Date: 20060321
  Transmission Date: 20061013
  Serious: Yes (Death, Life-Threatening)
  Sender: FDA-Public Use
  Company Number: 2005171015

PATIENT
  Age: 15 Year
  Sex: Female

DRUGS (3)
  1. SOLU-MEDROL [Suspect]
     Indication: STATUS ASTHMATICUS
     Dosage: 125 MG, INTRAVENOUS
     Route: 042
     Dates: start: 20051121, end: 20051121
  2. SALBUTAMOL [Concomitant]
  3. ALL OTHER THERAPEUTIC PRODUCTS [Concomitant]

REACTIONS (6)
  - ANAPHYLACTIC REACTION [None]
  - BRADYCARDIA [None]
  - BRONCHOSPASM [None]
  - CARDIAC ARREST [None]
  - INJECTION SITE IRRITATION [None]
  - THERAPY NON-RESPONDER [None]
